FAERS Safety Report 6837267-6 (Version None)
Quarter: 2010Q3

REPORT INFORMATION
  Report Type: 
  Country: None (occurrence: None)
  Receive Date: 20100713
  Receipt Date: 20070509
  Transmission Date: 20110219
  Serious: No
  Sender: FDA-Public Use
  Company Number: US-PFIZER INC-2007037773

PATIENT
  Sex: Female
  Weight: 54.43 kg

DRUGS (3)
  1. CHANTIX [Suspect]
     Indication: SMOKING CESSATION THERAPY
     Dates: start: 20070429, end: 20070508
  2. DRUG USED IN DIABETES [Concomitant]
     Indication: DIABETES MELLITUS
  3. CHOLESTEROL [Concomitant]
     Indication: BLOOD CHOLESTEROL INCREASED

REACTIONS (4)
  - ABDOMINAL PAIN UPPER [None]
  - HEADACHE [None]
  - NAUSEA [None]
  - WITHDRAWAL SYNDROME [None]
